FAERS Safety Report 24227215 (Version 1)
Quarter: 2024Q3

REPORT INFORMATION
  Report Type: Report from Study
  Country: NL (occurrence: NL)
  Receive Date: 20240820
  Receipt Date: 20240820
  Transmission Date: 20241016
  Serious: Yes (Death)
  Sender: ROCHE
  Company Number: NL-ROCHE-10000051849

PATIENT

DRUGS (13)
  1. MYCOPHENOLATE MOFETIL [Suspect]
     Active Substance: MYCOPHENOLATE MOFETIL
     Indication: Prophylaxis against graft versus host disease
     Route: 065
  2. MYCOPHENOLATE MOFETIL [Suspect]
     Active Substance: MYCOPHENOLATE MOFETIL
     Indication: Prophylaxis against transplant rejection
  3. BUSULFAN [Suspect]
     Active Substance: BUSULFAN
     Indication: Prophylaxis against transplant rejection
     Dosage: AIBW (INDICATES ADJUSTED IDEAL BODY WEIGHT)QID QUARTER IN DIE (4 TIMES DAILY)(FOR 2-4 DAYS)
     Route: 065
  4. FLUDARABINE [Suspect]
     Active Substance: FLUDARABINE PHOSPHATE
     Indication: Prophylaxis against transplant rejection
     Dosage: FOR 4 DAYS
     Route: 065
  5. FLUDARABINE [Suspect]
     Active Substance: FLUDARABINE PHOSPHATE
     Dosage: FOR 5 DAYS,2 GY TBI (GRAY TOTAL BODY IRRADIATION)
     Route: 065
  6. CYCLOPHOSPHAMIDE [Suspect]
     Active Substance: CYCLOPHOSPHAMIDE
     Indication: Prophylaxis against graft versus host disease
     Dosage: FOR 2 DAYS
     Route: 065
  7. CYCLOPHOSPHAMIDE [Suspect]
     Active Substance: CYCLOPHOSPHAMIDE
     Indication: Prophylaxis against transplant rejection
  8. THIOTEPA [Suspect]
     Active Substance: THIOTEPA
     Indication: Prophylaxis against transplant rejection
     Dosage: FOR 2 DAYS
     Route: 065
  9. DAUNORUBICIN [Suspect]
     Active Substance: DAUNORUBICIN
     Indication: Prophylaxis against transplant rejection
     Dosage: ADMINISTERED ON DAYS 1 TO3
     Route: 065
  10. CYTARABINE [Suspect]
     Active Substance: CYTARABINE
     Indication: Prophylaxis against transplant rejection
     Dosage: ADMINISTERED ON DAYS 1 TO 7
     Route: 065
  11. CYTARABINE [Suspect]
     Active Substance: CYTARABINE
     Dosage: ADMINISTERED TWICE DAILY (BIS IN DIE[BID])ON DAYS 1 TO 6)
     Route: 065
  12. TACROLIMUS [Suspect]
     Active Substance: TACROLIMUS
     Indication: Prophylaxis against graft versus host disease
     Route: 065
  13. TACROLIMUS [Suspect]
     Active Substance: TACROLIMUS
     Indication: Prophylaxis against transplant rejection

REACTIONS (3)
  - Cerebral haemorrhage [Fatal]
  - Organising pneumonia [Fatal]
  - Infection [Fatal]
